FAERS Safety Report 8121639-6 (Version None)
Quarter: 2012Q1

REPORT INFORMATION
  Report Type: 
  Country: None (occurrence: None)
  Receive Date: 20120208
  Receipt Date: 20120208
  Transmission Date: 20120608
  Serious: Yes (Other)
  Sender: FDA-Public Use
  Company Number: None

PATIENT
  Age: 17 Year
  Sex: Male
  Weight: 60.327 kg

DRUGS (1)
  1. CERON DM SYRUP [Suspect]
     Dosage: 1 TEASPOON
     Route: 048
     Dates: start: 20120206, end: 20120206

REACTIONS (9)
  - VISION BLURRED [None]
  - DEHYDRATION [None]
  - DRUG ADMINISTRATION ERROR [None]
  - ASTHENIA [None]
  - GAIT DISTURBANCE [None]
  - VISUAL IMPAIRMENT [None]
  - VOMITING [None]
  - DIZZINESS [None]
  - LOSS OF CONSCIOUSNESS [None]
